FAERS Safety Report 5638464-8 (Version None)
Quarter: 2008Q1

REPORT INFORMATION
  Report Type: 
  Country: None (occurrence: None)
  Receive Date: 20080226
  Receipt Date: 20080215
  Transmission Date: 20080703
  Serious: Yes (Hospitalization, Other)
  Sender: FDA-Public Use
  Company Number: GB-RANBAXY-2008RR-13050

PATIENT

DRUGS (3)
  1. TAMSULOSIN HCL [Suspect]
     Dosage: 1 DF, QD
     Route: 048
     Dates: start: 20070401
  2. CO-CODAMOL [Concomitant]
     Dosage: UNK
     Route: 048
  3. CODIPAR [Concomitant]
     Route: 048

REACTIONS (2)
  - RETINAL DISORDER [None]
  - VISUAL DISTURBANCE [None]
